FAERS Safety Report 8219643-2 (Version None)
Quarter: 2012Q1

REPORT INFORMATION
  Report Type: 
  Country: None (occurrence: None)
  Receive Date: 20120319
  Receipt Date: 20120312
  Transmission Date: 20120608
  Serious: Yes (Hospitalization)
  Sender: FDA-Public Use
  Company Number: US-TEVA-327770USA

PATIENT
  Age: 58 Year
  Sex: Female

DRUGS (2)
  1. SERTRALINE HYDROCHLORIDE [Suspect]
     Indication: BIPOLAR DISORDER
     Route: 065
  2. ZIPRASIDONE HYDROCHLORIDE [Suspect]
     Dosage: 80 MILLIGRAM;

REACTIONS (7)
  - BRADYKINESIA [None]
  - PARKINSONISM [None]
  - MASKED FACIES [None]
  - DYSKINESIA [None]
  - RABBIT SYNDROME [None]
  - GAIT DISTURBANCE [None]
  - TREMOR [None]
